FAERS Safety Report 4741801-X (Version None)
Quarter: 2005Q3

REPORT INFORMATION
  Report Type: 
  Country: None (occurrence: None)
  Receive Date: 20050803
  Receipt Date: 20050128
  Transmission Date: 20060218
  Serious: Yes (Hospitalization)
  Sender: FDA-Public Use
  Company Number: 2005023490

PATIENT

DRUGS (1)
  1. FLAGYL [Suspect]
     Indication: RASH

REACTIONS (1)
  - NEUROPATHY PERIPHERAL [None]
